FAERS Safety Report 10486303 (Version 3)
Quarter: 2015Q1

REPORT INFORMATION
  Report Type: Spontaneous
  Country: JP (occurrence: None)
  Receive Date: 20140926
  Receipt Date: 20150209
  Transmission Date: 20150720
  Serious: Yes (Other)
  Sender: FDA-Public Use
  Company Number: 2014JP000611

PATIENT
  Age: 82 Year
  Sex: Male

DRUGS (5)
  1. EPOETIN [Concomitant]
     Active Substance: ERYTHROPOIETIN
  2. RIONA [Suspect]
     Active Substance: FERRIC CITRATE ANHYDROUS
     Indication: HYPERPHOSPHATAEMIA
     Route: 048
     Dates: start: 20140707, end: 20140820
  3. WARFARIN POTASSIUM [Concomitant]
     Active Substance: WARFARIN POTASSIUM
  4. VASOLAN (VERAPAMIL HYDROCHLORIDE) [Concomitant]
  5. NEXIUM [Concomitant]
     Active Substance: ESOMEPRAZOLE MAGNESIUM

REACTIONS (4)
  - Shunt occlusion [None]
  - Sepsis [None]
  - Haemoglobin increased [None]
  - Pneumonia [None]

NARRATIVE: CASE EVENT DATE: 20140820
